FAERS Safety Report 7757414-1 (Version None)
Quarter: 2011Q3

REPORT INFORMATION
  Report Type: 
  Country: None (occurrence: None)
  Receive Date: 20110916
  Receipt Date: 20110908
  Transmission Date: 20111222
  Serious: Yes (Hospitalization)
  Sender: FDA-Public Use
  Company Number: US-ACTELION-A-US2011-53087

PATIENT

DRUGS (3)
  1. CALCIUM CHANNEL BLOCKERS [Concomitant]
  2. COUMADIN [Concomitant]
  3. TRACLEER [Suspect]
     Indication: PULMONARY ARTERIAL HYPERTENSION
     Dosage: UNK
     Route: 048
     Dates: start: 20100402

REACTIONS (7)
  - ANAEMIA [None]
  - GASTRIC ULCER SURGERY [None]
  - ENDOSCOPY [None]
  - FATIGUE [None]
  - ASTHENIA [None]
  - GASTROINTESTINAL HAEMORRHAGE [None]
  - DYSPNOEA [None]
